FAERS Safety Report 23331019 (Version 1)
Quarter: 2023Q4

REPORT INFORMATION
  Report Type: Other
  Country: CA (occurrence: None)
  Receive Date: 20231222
  Receipt Date: 20231222
  Transmission Date: 20240110
  Serious: Yes (Other)
  Sender: FDA-Public Use
  Company Number: CA-ROCHE-3475457

PATIENT
  Sex: Female

DRUGS (1)
  1. VABYSMO [Suspect]
     Active Substance: FARICIMAB\FARICIMAB-SVOA
     Indication: Product used for unknown indication
     Route: 065
     Dates: start: 20231208

REACTIONS (4)
  - Myocardial infarction [Unknown]
  - Blindness [Unknown]
  - Visual impairment [Unknown]
  - Burning sensation [Unknown]
